FAERS Safety Report 8793386 (Version 3)
Quarter: 2014Q2

REPORT INFORMATION
  Report Type: Spontaneous
  Country: US (occurrence: US)
  Receive Date: 20120917
  Receipt Date: 20140530
  Transmission Date: 20141212
  Serious: Yes (Other)
  Sender: FDA-Public Use
  Company Number: US-PFIZER INC-2012228004

PATIENT
  Age: 59 Year
  Sex: Female
  Weight: 81.6 kg

DRUGS (5)
  1. DEPO-MEDROL [Suspect]
     Indication: INTERVERTEBRAL DISC PROTRUSION
     Dosage: EITHER TWO TIMES IN A YEAR OR THREE TIMES IN A YEAR
     Route: 037
     Dates: start: 2004, end: 20120206
  2. DEPO-MEDROL [Suspect]
     Indication: SPONDYLITIS
  3. DEPO-MEDROL [Suspect]
     Indication: ARTHRITIS
  4. ARMOUR THYROID [Concomitant]
     Indication: THYROID DISORDER
     Dosage: 90 MG, 1X/DAY
  5. METFORMIN [Concomitant]
     Dosage: UNK

REACTIONS (30)
  - Off label use [Unknown]
  - Myocardial infarction [Unknown]
  - Dysphagia [Not Recovered/Not Resolved]
  - Gastrointestinal disorder [Not Recovered/Not Resolved]
  - Endocrine disorder [Unknown]
  - Vitamin D decreased [Unknown]
  - Hormone level abnormal [Unknown]
  - Nausea [Unknown]
  - Oropharyngeal pain [Not Recovered/Not Resolved]
  - Sputum decreased [Unknown]
  - Hiatus hernia [Not Recovered/Not Resolved]
  - Sleep disorder [Unknown]
  - Vomiting [Unknown]
  - Blood sodium increased [Unknown]
  - Blood glucose increased [Recovered/Resolved]
  - Blood insulin increased [Not Recovered/Not Resolved]
  - Reaction to preservatives [Unknown]
  - Insulin resistance [Not Recovered/Not Resolved]
  - Musculoskeletal disorder [Not Recovered/Not Resolved]
  - Food allergy [Not Recovered/Not Resolved]
  - Gait disturbance [Not Recovered/Not Resolved]
  - Cardiac disorder [Not Recovered/Not Resolved]
  - Acidosis [Not Recovered/Not Resolved]
  - Hunger [Not Recovered/Not Resolved]
  - Weight increased [Not Recovered/Not Resolved]
  - Abdominal distension [Not Recovered/Not Resolved]
  - Liver disorder [Recovered/Resolved]
  - Limb discomfort [Not Recovered/Not Resolved]
  - Abdominal pain [Not Recovered/Not Resolved]
  - Chest pain [Unknown]
